FAERS Safety Report 16850682 (Version 1)
Quarter: 2019Q3

REPORT INFORMATION
  Report Type: Spontaneous
  Country: US (occurrence: US)
  Receive Date: 20190925
  Receipt Date: 20190925
  Transmission Date: 20191005
  Serious: No
  Sender: FDA-Public Use
  Company Number: US-THERAPEUTICSMD-2019TMD01753

PATIENT
  Age: 66 Year
  Sex: Female

DRUGS (1)
  1. IMVEXXY [Suspect]
     Active Substance: ESTRADIOL
     Dosage: UNK
     Route: 067
     Dates: start: 2019, end: 201906

REACTIONS (2)
  - Vulvovaginal burning sensation [Unknown]
  - Vulvovaginal discomfort [Unknown]

NARRATIVE: CASE EVENT DATE: 2019
